FAERS Safety Report 6453796-1 (Version None)
Quarter: 2009Q4

REPORT INFORMATION
  Report Type: 
  Country: None (occurrence: None)
  Receive Date: 20091124
  Receipt Date: 20091112
  Transmission Date: 20100525
  Serious: Yes (Other)
  Sender: FDA-Public Use
  Company Number: IT-BAYER-200939059GPV

PATIENT
  Age: 32 Year
  Sex: Female

DRUGS (1)
  1. ASPIRIN [Suspect]
     Indication: INFLUENZA
     Route: 048
     Dates: start: 20091107, end: 20091108

REACTIONS (2)
  - URTICARIA [None]
  - VASCULITIS [None]
